FAERS Safety Report 8322990-7 (Version None)
Quarter: 2012Q2

REPORT INFORMATION
  Report Type: 
  Country: None (occurrence: None)
  Receive Date: 20120430
  Receipt Date: 20081024
  Transmission Date: 20120825
  Serious: Yes (Other)
  Sender: FDA-Public Use
  Company Number: US-TEVA-US024867

PATIENT
  Sex: Female

DRUGS (1)
  1. PROVIGIL [Suspect]

REACTIONS (2)
  - CRYING [None]
  - SUICIDAL IDEATION [None]
